FAERS Safety Report 17191858 (Version 1)
Quarter: 2019Q4

REPORT INFORMATION
  Report Type: Spontaneous
  Country: BE (occurrence: BE)
  Receive Date: 20191223
  Receipt Date: 20191223
  Transmission Date: 20200122
  Serious: Yes (Life-Threatening, Hospitalization, Other)
  Sender: FDA-Public Use
  Company Number: BE-BAYER-2019-172704

PATIENT
  Age: 84 Year
  Sex: Female

DRUGS (7)
  1. KETOROLAC [Concomitant]
     Active Substance: KETOROLAC TROMETHAMINE
     Indication: ANTIINFLAMMATORY THERAPY
     Dosage: UNK
  2. CIPROXINE 500 MG [Suspect]
     Active Substance: CIPROFLOXACIN
     Indication: LEUKOCYTURIA
     Dosage: 500 MG, BID
     Route: 048
  3. CIPROXINE 500 MG [Interacting]
     Active Substance: CIPROFLOXACIN
     Indication: PYELONEPHRITIS
  4. HYOSCINE BUTYLBROMIDE [Concomitant]
     Active Substance: BUTYLSCOPOLAMINE BROMIDE
     Indication: MUSCLE SPASMS
  5. TRAMADOL. [Concomitant]
     Active Substance: TRAMADOL
     Indication: ANALGESIC THERAPY
     Dosage: UNK
  6. SOTALOL. [Interacting]
     Active Substance: SOTALOL
     Dosage: 160 MG, BID
  7. PARACETAMOL [Concomitant]
     Active Substance: ACETAMINOPHEN
     Indication: ANALGESIC THERAPY
     Dosage: UNK

REACTIONS (6)
  - Cardiac arrest [Recovered/Resolved]
  - Torsade de pointes [Recovered/Resolved]
  - Electrocardiogram QT prolonged [Unknown]
  - Potentiating drug interaction [Recovered/Resolved]
  - Renal colic [Unknown]
  - Labelled drug-drug interaction medication error [None]
